FAERS Safety Report 21840777 (Version 1)
Quarter: 2023Q1

REPORT INFORMATION
  Report Type: Spontaneous
  Country: CN (occurrence: CN)
  Receive Date: 20230110
  Receipt Date: 20230110
  Transmission Date: 20230417
  Serious: Yes (Other)
  Sender: FDA-Public Use
  Company Number: CN-MACLEODS PHARMACEUTICALS US LTD-MAC2022039105

PATIENT

DRUGS (3)
  1. TRIAMCINOLONE [Suspect]
     Active Substance: TRIAMCINOLONE
     Indication: Chorioretinitis
     Dosage: 20 MILLIGRAM, SINGLE (INJECTION VIA PERIBULBAR ROUTE)
     Route: 065
  2. PREDNISOLONE [Suspect]
     Active Substance: PREDNISOLONE
     Indication: Chorioretinitis
     Dosage: 0.6 MICROGRAM/KILOGRAM, QD
     Route: 065
  3. PREDNISOLONE [Suspect]
     Active Substance: PREDNISOLONE
     Indication: Condition aggravated
     Dosage: UNK (TAPERED DOSE)
     Route: 065

REACTIONS (3)
  - Chorioretinitis [Recovered/Resolved]
  - Condition aggravated [Recovered/Resolved]
  - Eye disorder [Recovered/Resolved]
